FAERS Safety Report 8218878-2 (Version None)
Quarter: 2012Q1

REPORT INFORMATION
  Report Type: 
  Country: None (occurrence: None)
  Receive Date: 20120306
  Receipt Date: 20110622
  Transmission Date: 20120608
  Serious: Yes (Other)
  Sender: FDA-Public Use
  Company Number: US-006389

PATIENT
  Age: 49 Year
  Sex: Male

DRUGS (6)
  1. PREDNISONE TAB [Concomitant]
  2. ISOVUE-370 [Suspect]
     Indication: CHEST PAIN
     Dosage: 50ML ONCE INTRA-ARTERIAL
     Route: 013
     Dates: start: 20110621, end: 20110621
  3. ISOVUE-370 [Suspect]
     Indication: CATHETERISATION CARDIAC
     Dosage: 50ML ONCE INTRA-ARTERIAL
     Route: 013
     Dates: start: 20110621, end: 20110621
  4. ASPIRIN [Concomitant]
  5. SIMVASTATIN [Concomitant]
  6. LISINOPRIL [Concomitant]

REACTIONS (1)
  - ANAPHYLACTIC SHOCK [None]
